FAERS Safety Report 17387895 (Version 3)
Quarter: 2021Q2

REPORT INFORMATION
  Report Type: Spontaneous
  Country: US (occurrence: US)
  Receive Date: 20200206
  Receipt Date: 20210521
  Transmission Date: 20210716
  Serious: No
  Sender: FDA-Public Use
  Company Number: US-RADIUS HEALTH INC.-2020US000279

PATIENT
  Sex: Female

DRUGS (6)
  1. FENTANYL. [Concomitant]
     Active Substance: FENTANYL
     Indication: RHEUMATOID ARTHRITIS
  2. OXYCODONE [Concomitant]
     Active Substance: OXYCODONE
     Indication: RHEUMATOID ARTHRITIS
  3. TYMLOS [Suspect]
     Active Substance: ABALOPARATIDE
     Dosage: UNK
     Dates: end: 20200405
  4. TYMLOS [Suspect]
     Active Substance: ABALOPARATIDE
     Indication: OSTEOPOROSIS POSTMENOPAUSAL
     Dosage: 80 MCG, QD
     Route: 058
     Dates: start: 20200111
  5. OXYCODONE [Concomitant]
     Active Substance: OXYCODONE
     Indication: OSTEOPOROSIS
  6. FENTANYL. [Concomitant]
     Active Substance: FENTANYL
     Indication: OSTEOPOROSIS

REACTIONS (9)
  - Micturition disorder [Unknown]
  - Heart rate increased [Unknown]
  - Viral infection [Recovered/Resolved]
  - Vomiting [Unknown]
  - Dizziness [Recovered/Resolved]
  - Nausea [Unknown]
  - Feeling hot [Unknown]
  - Palpitations [Recovered/Resolved]
  - Flushing [Unknown]
